FAERS Safety Report 5940483-9 (Version None)
Quarter: 2008Q4

REPORT INFORMATION
  Report Type: 
  Country: None (occurrence: None)
  Receive Date: 20081015
  Receipt Date: 20081015
  Transmission Date: 20090506
  Serious: No
  Sender: FDA-Public Use
  Company Number: None

PATIENT

DRUGS (2)
  1. OCUFLOX [Suspect]
     Dosage: SOLUTION/DROPS 0.3%
  2. OFLOXACIN [Suspect]
     Dosage: SOLUTION/DROPS 0.3%

REACTIONS (2)
  - DRUG DISPENSING ERROR [None]
  - MEDICATION ERROR [None]
